FAERS Safety Report 7506264-X (Version None)
Quarter: 2011Q2

REPORT INFORMATION
  Report Type: 
  Country: None (occurrence: None)
  Receive Date: 20110526
  Receipt Date: 20110517
  Transmission Date: 20111010
  Serious: Yes (Other)
  Sender: FDA-Public Use
  Company Number: PHHY2011JP43125

PATIENT
  Age: 72 Year
  Sex: Female

DRUGS (17)
  1. CARTEOLOL HYDROCHLORIDE [Concomitant]
     Dosage: 15 MG, UNK
     Route: 048
  2. BEZATOL [Concomitant]
     Dosage: 400 MG, UNK
     Route: 048
  3. TICLOPIDINE HCL [Concomitant]
     Dosage: 100 MG, UNK
     Route: 048
  4. IRBESARTAN [Concomitant]
     Dosage: 100 MG, UNK
     Route: 048
  5. AVAPRO [Concomitant]
     Dosage: 50 MG, UNK
     Route: 048
  6. DIAZEPAM [Concomitant]
  7. DEPAS [Concomitant]
  8. AMOBAN [Concomitant]
     Dosage: 7.5 MG, UNK
     Route: 048
  9. PLAVIX [Concomitant]
     Dosage: 75 MG, UNK
     Route: 048
  10. LOPRESSOR [Concomitant]
     Indication: HYPERTENSION
  11. DOXAZOSIN MESYLATE [Concomitant]
     Dosage: 4 MG, UNK
     Route: 048
  12. EXFORGE [Suspect]
     Indication: HYPERTENSION
     Dosage: 1 DF, DAILY
     Route: 048
     Dates: start: 20110428
  13. ADETPHOS [Concomitant]
     Route: 048
  14. HALCION [Concomitant]
     Route: 048
  15. CONIEL [Concomitant]
     Dosage: 8 MG, UNK
     Route: 048
  16. CEPHADOL [Concomitant]
     Dosage: 7.5 MG, UNK
     Route: 048
  17. CRESTOR [Concomitant]
     Dosage: 2.5 MG, UNK
     Route: 048

REACTIONS (4)
  - BLOOD PRESSURE SYSTOLIC INCREASED [None]
  - NOCTURIA [None]
  - HYPERTENSIVE ENCEPHALOPATHY [None]
  - DISCOMFORT [None]
